FAERS Safety Report 10904198 (Version 1)
Quarter: 2015Q1

REPORT INFORMATION
  Report Type: Spontaneous
  Country: US (occurrence: None)
  Receive Date: 20150303
  Receipt Date: 20150303
  Transmission Date: 20150721
  Serious: No
  Sender: FDA-Public Use
  Company Number: None

PATIENT
  Age: 70 Year
  Sex: Male
  Weight: 77.11 kg

DRUGS (9)
  1. ENOXAPARIN SODIUM. [Suspect]
     Active Substance: ENOXAPARIN SODIUM
  2. ENOXAPARIN SODIUM INJECTION [Concomitant]
  3. RANATINE [Concomitant]
  4. NASONEX [Concomitant]
     Active Substance: MOMETASONE FUROATE
  5. CALCIUM PLUS [Concomitant]
  6. PRAVASTATIN [Concomitant]
     Active Substance: PRAVASTATIN\PRAVASTATIN SODIUM
  7. ZYRTEK [Concomitant]
  8. OMNEPRAZOLE [Concomitant]
  9. OCUVITE [Concomitant]
     Active Substance: VITAMINS

REACTIONS (3)
  - Needle issue [None]
  - Product quality issue [None]
  - Injury associated with device [None]

NARRATIVE: CASE EVENT DATE: 20150220
